FAERS Safety Report 25229724 (Version 1)
Quarter: 2025Q2

REPORT INFORMATION
  Report Type: Spontaneous
  Country: ES (occurrence: ES)
  Receive Date: 20250423
  Receipt Date: 20250423
  Transmission Date: 20250716
  Serious: Yes (Other)
  Sender: TEVA
  Company Number: None

PATIENT
  Age: 70 Year
  Sex: Female

DRUGS (2)
  1. VENLAFAXINE [Interacting]
     Active Substance: VENLAFAXINE HYDROCHLORIDE
     Indication: Product used for unknown indication
     Route: 048
     Dates: start: 202503
  2. DULOXETINE [Interacting]
     Active Substance: DULOXETINE
     Indication: Product used for unknown indication
     Route: 048
     Dates: start: 2024, end: 20250327

REACTIONS (3)
  - Dizziness [Recovered/Resolved]
  - Duplicate therapy error [Recovered/Resolved]
  - Fall [Recovered/Resolved]

NARRATIVE: CASE EVENT DATE: 20250301
